FAERS Safety Report 20638401 (Version 1)
Quarter: 2022Q1

REPORT INFORMATION
  Report Type: Spontaneous
  Country: US (occurrence: US)
  Receive Date: 20220325
  Receipt Date: 20220325
  Transmission Date: 20220424
  Serious: Yes (Other)
  Sender: FDA-Public Use
  Company Number: US-INSUD PHARMA-2203US01093

PATIENT

DRUGS (6)
  1. NUVESSA [Suspect]
     Active Substance: METRONIDAZOLE
     Indication: Evidence based treatment
     Dosage: DAYS 1-4
     Route: 042
  2. NUVESSA [Suspect]
     Active Substance: METRONIDAZOLE
     Dosage: RESTARTED DAY 6
  3. CLINDAMYCIN [Suspect]
     Active Substance: CLINDAMYCIN
     Indication: Evidence based treatment
     Dosage: 1 DOSE, DAY 1
     Route: 042
  4. CLINDAMYCIN [Suspect]
     Active Substance: CLINDAMYCIN
     Dosage: RESTARTED, DAYS 7-8
  5. VANCOMYCIN [Suspect]
     Active Substance: VANCOMYCIN
     Indication: Evidence based treatment
     Dosage: DAYS 1-9
     Route: 042
  6. CEFEPIME [Suspect]
     Active Substance: CEFEPIME HYDROCHLORIDE
     Indication: Evidence based treatment
     Dosage: DAYS 1-9
     Route: 042

REACTIONS (26)
  - Acute generalised exanthematous pustulosis [Recovering/Resolving]
  - Multiple organ dysfunction syndrome [Recovering/Resolving]
  - Encephalopathy [Recovered/Resolved]
  - Acute kidney injury [Not Recovered/Not Resolved]
  - Liver injury [Recovering/Resolving]
  - Pyrexia [Recovered/Resolved]
  - Neutrophilia [Recovering/Resolving]
  - Skin lesion [Recovering/Resolving]
  - Rash pustular [Recovering/Resolving]
  - Erythema [Recovering/Resolving]
  - Skin oedema [Recovering/Resolving]
  - Blister [Recovering/Resolving]
  - Skin plaque [Recovering/Resolving]
  - Skin exfoliation [Recovering/Resolving]
  - Skin erosion [Recovering/Resolving]
  - Skin abrasion [Recovering/Resolving]
  - Unresponsive to stimuli [Recovered/Resolved]
  - Haemodynamic instability [Recovering/Resolving]
  - Metabolic acidosis [Recovering/Resolving]
  - Leukocytosis [Recovering/Resolving]
  - Eosinophilia [Recovering/Resolving]
  - Rash [Recovering/Resolving]
  - Hypotension [Recovering/Resolving]
  - Tachycardia [Recovering/Resolving]
  - Mental status changes [Recovered/Resolved]
  - Tachypnoea [Recovering/Resolving]
